FAERS Safety Report 4818928-7 (Version None)
Quarter: 2005Q4

REPORT INFORMATION
  Report Type: 
  Country: None (occurrence: None)
  Receive Date: 20051102
  Receipt Date: 20051102
  Transmission Date: 20060501
  Serious: Yes (Hospitalization, Other)
  Sender: FDA-Public Use
  Company Number: None

PATIENT
  Sex: Male
  Weight: 58.6 kg

DRUGS (6)
  1. CARBOPLATIN [Suspect]
     Indication: NON-SMALL CELL LUNG CANCER
     Dosage: SEE IMAGE
     Dates: start: 20051005, end: 20051005
  2. DOCETAXEL [Suspect]
     Dosage: SEE IMAGE
     Dates: start: 20051024
  3. RADIATION [Suspect]
     Dosage: SEE IMAGE
     Dates: start: 20051005
  4. CARBOPLATIN [Suspect]
     Dosage: SEE IMAGE
     Dates: start: 20051005, end: 20051005
  5. DOCETAXEL [Suspect]
     Dosage: SEE IMAGE
     Dates: start: 20051005
  6. METOPROLOL TARTRATE [Concomitant]

REACTIONS (7)
  - CHEST PAIN [None]
  - CLAVICLE FRACTURE [None]
  - DIZZINESS [None]
  - FALL [None]
  - HYPOVOLAEMIA [None]
  - MUSCULOSKELETAL PAIN [None]
  - ORTHOSTATIC HYPOTENSION [None]
